FAERS Safety Report 17064308 (Version 1)
Quarter: 2019Q4

REPORT INFORMATION
  Report Type: Spontaneous
  Country: GB (occurrence: GB)
  Receive Date: 20191122
  Receipt Date: 20191122
  Transmission Date: 20200122
  Serious: Yes (Other)
  Sender: FDA-Public Use
  Company Number: GB-TEVA-2019-GB-1139408

PATIENT
  Age: 83 Year
  Sex: Male
  Weight: 72 kg

DRUGS (18)
  1. LANSOPRAZOLE. [Concomitant]
     Active Substance: LANSOPRAZOLE
     Dosage: 1 DOSAGE FORMS
     Dates: start: 20171030
  2. IBUPROFEN. [Concomitant]
     Active Substance: IBUPROFEN
     Indication: PAIN
     Dosage: APPLY TO AFFECTED UPTO THREE TIMES DAILY, 3 DOSAGE FORMS
     Dates: start: 20180713
  3. TACROLIMUS. [Concomitant]
     Active Substance: TACROLIMUS
     Dosage: APPLY AS DIRECTED
     Dates: start: 20180314
  4. MONTELUKAST [Suspect]
     Active Substance: MONTELUKAST SODIUM
     Route: 065
     Dates: start: 20180719, end: 20180722
  5. SYMBICORT [Concomitant]
     Active Substance: BUDESONIDE\FORMOTEROL FUMARATE DIHYDRATE
     Dosage: 2 DOSAGE FORMS
     Dates: start: 20171030
  6. DERMOL [Concomitant]
     Active Substance: BENZALKONIUM CHLORIDE\CHLORHEXIDINE HYDROCHLORIDE\ISOPROPYL MYRISTATE\PARAFFIN
     Dosage: USE AS SOAP SUBSTITUTE
     Dates: start: 20180706, end: 20180707
  7. DIPROBASE [Concomitant]
     Active Substance: CHLOROCRESOL
     Dosage: APPLY AS NEEDED
     Dates: start: 20171030
  8. APIXABAN [Concomitant]
     Active Substance: APIXABAN
     Dosage: 2 DOSAGE FORMS
     Dates: start: 20180430
  9. HYDROXYZINE [Concomitant]
     Active Substance: HYDROXYZINE HYDROCHLORIDE
     Dosage: EACH NIGHT 1 DOSAGE FORMS
     Dates: start: 20180608, end: 20180609
  10. ATORVASTATIN [Concomitant]
     Active Substance: ATORVASTATIN
     Dosage: 1 DOSAGE FORMS
     Dates: start: 20171030
  11. MOMETASONE [Concomitant]
     Active Substance: MOMETASONE
     Dosage: APPLY SPARINGLY  NLY IF NEEDED EVERY DAY
     Dates: start: 20180129
  12. COCODAMOL [Concomitant]
     Active Substance: ACETAMINOPHEN\CODEINE PHOSPHATE
     Dosage: TAKE 1 OR 2 TABLETS FOUR TIMES DAILY
     Dates: start: 20180713, end: 20180725
  13. ALENDRONIC ACID [Concomitant]
     Active Substance: ALENDRONIC ACID
     Dosage: 1 DOSAGE FORMS
     Dates: start: 20170410
  14. ADCAL [Concomitant]
     Dosage: 2 DOSAGE FORMS
     Dates: start: 20171030
  15. SALBUTAMOL [Concomitant]
     Active Substance: ALBUTEROL
     Dosage: TAKE 2 PUFFS WHEN REQUIRED, 2 DOSAGE FORMS
     Dates: start: 20171030
  16. LACTULOSE. [Concomitant]
     Active Substance: LACTULOSE
     Dosage: 20 ML PER DAY
     Dates: start: 20171030
  17. FEXOFENADINE [Concomitant]
     Active Substance: FEXOFENADINE HYDROCHLORIDE
     Dosage: AS DIRECTED BY SPECIALIST
     Dates: start: 20180314
  18. TOBRADEX [Concomitant]
     Active Substance: DEXAMETHASONE\TOBRAMYCIN
     Dosage: 1 DROP RIGHT EYE TWO HOURLY, 4 GTT PER DAY
     Route: 047
     Dates: start: 20180323

REACTIONS (4)
  - Swollen tongue [Recovered/Resolved]
  - Lip swelling [Recovered/Resolved]
  - Dizziness [Recovered/Resolved]
  - Palpitations [Recovered/Resolved]

NARRATIVE: CASE EVENT DATE: 20180721
